FAERS Safety Report 8536795-5 (Version None)
Quarter: 2012Q2

REPORT INFORMATION
  Report Type: 
  Country: None (occurrence: None)
  Receive Date: 20120412
  Receipt Date: 20100331
  Transmission Date: 20120825
  Serious: Yes (Other)
  Sender: FDA-Public Use
  Company Number: PHEH2010US03404

PATIENT
  Age: 51 Year
  Sex: Male

DRUGS (1)
  1. AREDIA [Suspect]
     Dosage: 90 MG, QMO
     Dates: start: 19990422, end: 20020822

REACTIONS (2)
  - JOINT EFFUSION [None]
  - METASTASES TO BONE [None]
